FAERS Safety Report 5260094-0 (Version None)
Quarter: 2007Q1

REPORT INFORMATION
  Report Type: 
  Country: None (occurrence: None)
  Receive Date: 20070309
  Receipt Date: 20060309
  Transmission Date: 20070707
  Serious: No
  Sender: FDA-Public Use
  Company Number: US-GLAXOSMITHKLINE-A0596713A

PATIENT
  Age: 49 Year
  Sex: Female

DRUGS (2)
  1. NICORETTE [Suspect]
     Dates: start: 20060307
  2. COMMIT [Suspect]

REACTIONS (2)
  - HICCUPS [None]
  - TOOTH DISORDER [None]
